FAERS Safety Report 5650223-9 (Version None)
Quarter: 2008Q1

REPORT INFORMATION
  Report Type: 
  Country: None (occurrence: None)
  Receive Date: 20080303
  Receipt Date: 20080212
  Transmission Date: 20080703
  Serious: Yes (Death, Hospitalization)
  Sender: FDA-Public Use
  Company Number: S08-FRA-00641-01

PATIENT
  Age: 77 Year
  Sex: Male

DRUGS (7)
  1. MEMANTINE HCL [Suspect]
     Dosage: 20 MG QD;PO
     Route: 048
     Dates: end: 20071016
  2. MIRTAZAPINE [Suspect]
     Dosage: 7.5 MG QD;PO
     Route: 048
     Dates: end: 20071016
  3. MEPROBAMATE [Suspect]
     Dosage: 200 MG QD PO
     Route: 048
     Dates: end: 20071016
  4. MODOPAR               (LEVODOPA/BENSERAZIDE) [Suspect]
     Dosage: 250 MG TID PO
     Route: 048
     Dates: start: 19990101, end: 20071016
  5. THEOSTAT       (THEOPHYLLINE) [Suspect]
     Dosage: 200 MG BID;PO
     Route: 048
     Dates: start: 20070921, end: 20071016
  6. ZOCOR [Concomitant]
  7. PLAVIX [Concomitant]

REACTIONS (17)
  - ASPIRATION [None]
  - BRAIN SCAN ABNORMAL [None]
  - CEREBRAL ATROPHY [None]
  - COMA [None]
  - CONVULSION [None]
  - DEPRESSED LEVEL OF CONSCIOUSNESS [None]
  - DISORIENTATION [None]
  - DYSKINESIA [None]
  - ELECTROCARDIOGRAM ABNORMAL [None]
  - EXTRAPYRAMIDAL DISORDER [None]
  - FATIGUE [None]
  - HYPERTHERMIA [None]
  - LEUKOENCEPHALOPATHY [None]
  - MUSCLE RIGIDITY [None]
  - PARTIAL SEIZURES [None]
  - SNORING [None]
  - VASCULAR ENCEPHALOPATHY [None]
